FAERS Safety Report 9772707 (Version 1)
Quarter: 2013Q4

REPORT INFORMATION
  Report Type: Spontaneous
  Country: US (occurrence: US)
  Receive Date: 20131219
  Receipt Date: 20131219
  Transmission Date: 20140711
  Serious: No
  Sender: FDA-Public Use
  Company Number: US-009507513-1312USA007754

PATIENT
  Age: 43 Year
  Sex: Male

DRUGS (7)
  1. ISENTRESS [Suspect]
     Indication: HIV INFECTION
     Dosage: 400 MG, BID
     Route: 048
     Dates: start: 201112, end: 201204
  2. TRUVADA [Concomitant]
  3. ENALAPRIL MALEATE [Concomitant]
     Route: 048
  4. METOPROLOL [Concomitant]
  5. OMEPRAZOLE [Concomitant]
  6. VALACYCLOVIR HYDROCHLORIDE [Concomitant]
  7. XOPENEX [Concomitant]

REACTIONS (15)
  - Mental status changes [Recovered/Resolved]
  - Anxiety [Recovered/Resolved]
  - Paranoia [Recovered/Resolved]
  - Emotional disorder [Recovered/Resolved]
  - Crying [Recovered/Resolved]
  - Cognitive disorder [Recovered/Resolved]
  - Speech disorder [Recovering/Resolving]
  - Sleep disorder [Recovered/Resolved]
  - Musculoskeletal stiffness [Recovered/Resolved]
  - Headache [Recovered/Resolved]
  - Inflammation [Recovered/Resolved]
  - Abdominal distension [Recovered/Resolved]
  - Pharyngitis [Recovered/Resolved]
  - Inflammation [Recovered/Resolved]
  - Gastrointestinal inflammation [Recovered/Resolved]
